FAERS Safety Report 6005131-0 (Version None)
Quarter: 2008Q4

REPORT INFORMATION
  Report Type: 
  Country: None (occurrence: None)
  Receive Date: 20081216
  Receipt Date: 20081208
  Transmission Date: 20090506
  Serious: Yes (Hospitalization, Other)
  Sender: FDA-Public Use
  Company Number: JP-ABBOTT-08P-087-0491719-00

PATIENT
  Sex: Female

DRUGS (9)
  1. HUMIRA [Suspect]
     Indication: RHEUMATOID ARTHRITIS
     Route: 058
     Dates: start: 20080807, end: 20080821
  2. METHOTREXATE [Concomitant]
     Indication: RHEUMATOID ARTHRITIS
     Dates: start: 20080430, end: 20080822
  3. PREDNISOLONE [Concomitant]
     Indication: RHEUMATOID ARTHRITIS
     Dosage: 5 MG DAIILY DOSE
     Route: 048
     Dates: start: 20070331, end: 20080822
  4. FOLIC ACID [Concomitant]
     Indication: VITAMIN SUPPLEMENTATION
     Route: 048
     Dates: end: 20080822
  5. ETIZOLAM [Concomitant]
     Indication: INSOMNIA
     Dosage: 0.5 MG DAIILY DOSE
     Route: 048
     Dates: start: 20060703, end: 20080822
  6. DICLOFENAC SODIUM [Concomitant]
     Indication: RHEUMATOID ARTHRITIS
     Dosage: 75 MG DAILY DOSE
     Route: 048
     Dates: start: 20080430, end: 20080822
  7. ISONIAZID [Concomitant]
     Indication: ANTIBIOTIC PROPHYLAXIS
     Dosage: 200 MG DAILY DOSE
     Dates: end: 20080822
  8. ROXATIDINE ACETATE HCL [Concomitant]
     Indication: GASTROINTESTINAL DISORDER
     Dosage: 75 MG DAILY DOSE
     Route: 048
     Dates: start: 20080430, end: 20080822
  9. KETOPROFEN [Concomitant]
     Indication: RHEUMATOID ARTHRITIS
     Dosage: AS REQUIRED
     Dates: end: 20080822

REACTIONS (5)
  - ANOREXIA [None]
  - GASTRIC ULCER HAEMORRHAGE [None]
  - MELAENA [None]
  - PYREXIA [None]
  - SEPSIS [None]
